FAERS Safety Report 9328492 (Version 1)
Quarter: 2013Q2

REPORT INFORMATION
  Report Type: Spontaneous
  Country: US (occurrence: US)
  Receive Date: 20130604
  Receipt Date: 20130604
  Transmission Date: 20140414
  Serious: Yes (Other)
  Sender: FDA-Public Use
  Company Number: US-SANOFI-AVENTIS-2012SA050317

PATIENT
  Sex: Male

DRUGS (2)
  1. LANTUS [Suspect]
     Indication: TYPE 1 DIABETES MELLITUS
     Dosage: DOSE:9 UNIT(S)
     Route: 058
     Dates: start: 2007
  2. SOLOSTAR [Suspect]
     Indication: TYPE 1 DIABETES MELLITUS
     Dates: start: 2007

REACTIONS (3)
  - Hypoglycaemia [Recovered/Resolved]
  - Drug administration error [Unknown]
  - Wrong technique in drug usage process [Unknown]
